FAERS Safety Report 20908721 (Version 1)
Quarter: 2022Q2

REPORT INFORMATION
  Report Type: Spontaneous
  Country: RU (occurrence: RU)
  Receive Date: 20220603
  Receipt Date: 20220603
  Transmission Date: 20220720
  Serious: Yes (Other)
  Sender: FDA-Public Use
  Company Number: RU-HETERO-HET2022RU01172

PATIENT
  Age: 59 Year
  Sex: Female
  Weight: 76 kg

DRUGS (1)
  1. LAMIVUDINE [Suspect]
     Active Substance: LAMIVUDINE
     Indication: HIV infection
     Dosage: 150 MG, 1 INTAKE 1 TABLET FOR EVERY 2 DAYS
     Route: 048
     Dates: start: 20220221, end: 20220422

REACTIONS (1)
  - Renal impairment [Recovering/Resolving]

NARRATIVE: CASE EVENT DATE: 20220321
